FAERS Safety Report 8940451 (Version 1)
Quarter: 2012Q4

REPORT INFORMATION
  Report Type: 
  Country: CA (occurrence: CA)
  Receive Date: 20121130
  Receipt Date: 20121130
  Transmission Date: 20130627
  Serious: Yes (Death, Hospitalization, Other)
  Sender: FDA-Public Use
  Company Number: CA-009507513-1211CAN012155

PATIENT
  Age: 43 Year
  Sex: Female

DRUGS (10)
  1. CANCIDAS [Suspect]
     Indication: SYSTEMIC CANDIDA
     Dosage: 70 mg, Once
     Route: 041
     Dates: start: 200404
  2. CANCIDAS [Suspect]
     Dosage: 50 mg, qd
     Route: 041
     Dates: start: 200404
  3. CANCIDAS [Suspect]
     Dosage: 70 mg, Once
     Route: 041
     Dates: start: 200501
  4. CANCIDAS [Suspect]
     Dosage: 50 mg, qd
     Route: 041
     Dates: start: 200501
  5. CANCIDAS [Suspect]
     Dosage: 70 mg, Once
     Route: 041
     Dates: start: 200502
  6. CANCIDAS [Suspect]
     Dosage: 50 mg, qd
     Route: 041
     Dates: start: 200502
  7. PIPERACILLIN SODIUM (+) TAZOBACTAM SODIUM [Suspect]
     Indication: SYSTEMIC CANDIDA
     Dosage: UNK
     Dates: start: 200501
  8. PIPERACILLIN SODIUM (+) TAZOBACTAM SODIUM [Suspect]
     Dosage: UNK
     Dates: start: 200502
  9. PIPERACILLIN SODIUM (+) TAZOBACTAM SODIUM [Suspect]
     Dosage: UNK
     Dates: start: 200510
  10. FLUCONAZOLE [Suspect]
     Indication: SYSTEMIC CANDIDA
     Dosage: UNK
     Dates: start: 200510

REACTIONS (6)
  - Septic shock [Recovered/Resolved]
  - Respiratory distress [Recovered/Resolved]
  - Systemic candida [Recovered/Resolved]
  - Lower gastrointestinal haemorrhage [Fatal]
  - Shock [Fatal]
  - Systemic candida [Fatal]
